FAERS Safety Report 12143325 (Version 3)
Quarter: 2016Q2

REPORT INFORMATION
  Report Type: Report from Study
  Country: US (occurrence: US)
  Receive Date: 20160304
  Receipt Date: 20160603
  Transmission Date: 20160815
  Serious: Yes (Death, Life-Threatening, Hospitalization, Other)
  Sender: FDA-Public Use
  Company Number: US-BIOGEN-2015BI00161439

PATIENT
  Age: 50 Year
  Sex: Female
  Weight: 49.49 kg

DRUGS (6)
  1. BENZTROPINE [Concomitant]
     Active Substance: BENZTROPINE
     Indication: HYPOMANIA
     Route: 048
     Dates: start: 20071017
  2. ALEVE [Concomitant]
     Active Substance: NAPROXEN SODIUM
     Route: 048
  3. PLEGRIDY [Suspect]
     Active Substance: PEGINTERFERON BETA-1A
     Indication: MULTIPLE SCLEROSIS
     Route: 058
     Dates: start: 20140904
  4. HALOPERIDOL. [Concomitant]
     Active Substance: HALOPERIDOL
     Indication: HYPOMANIA
     Route: 048
     Dates: start: 20071017
  5. HALOPERIDOL. [Concomitant]
     Active Substance: HALOPERIDOL
     Route: 048
  6. ALEVE [Concomitant]
     Active Substance: NAPROXEN SODIUM
     Indication: INFLUENZA LIKE ILLNESS
     Route: 048
     Dates: start: 20140804

REACTIONS (3)
  - Respiratory failure [Not Recovered/Not Resolved]
  - Coronary artery disease [Not Recovered/Not Resolved]
  - Acute myocardial infarction [Fatal]

NARRATIVE: CASE EVENT DATE: 20151212
